FAERS Safety Report 19846645 (Version 1)
Quarter: 2021Q3

REPORT INFORMATION
  Report Type: Spontaneous
  Country: DE (occurrence: DE)
  Receive Date: 20210917
  Receipt Date: 20210917
  Transmission Date: 20211014
  Serious: Yes (Hospitalization, Other)
  Sender: FDA-Public Use
  Company Number: DE-ACCORD-238797

PATIENT
  Age: 92 Year
  Sex: Female
  Weight: 55 kg

DRUGS (11)
  1. CANDESARTAN. [Concomitant]
     Active Substance: CANDESARTAN
     Dosage: 16 MG, 1?0?1?0
     Route: 048
  2. DULCOLAX NP [Concomitant]
     Dosage: 2.5 MG, AS NEEDED
     Route: 048
  3. TORASEMIDE [Suspect]
     Active Substance: TORSEMIDE
     Indication: PRODUCT USED FOR UNKNOWN INDICATION
     Dosage: 10 MG, 1.5?0?0?0
     Route: 048
  4. SPIRONOLACTONE. [Suspect]
     Active Substance: SPIRONOLACTONE
     Indication: PRODUCT USED FOR UNKNOWN INDICATION
     Dosage: 50 MG, MONDAY WEDNESDAY FRIDAY MORNING A TABLET
     Route: 048
  5. METAMIZOLE SODIUM [Concomitant]
     Active Substance: METAMIZOLE SODIUM
     Dosage: 500 MG, 1?1?1?1
     Route: 048
  6. NALOXONE HYDROCHLORIDE/TILIDINE HYDROCHLORIDE [Concomitant]
     Active Substance: NALOXONE HYDROCHLORIDE\TILIDINE HYDROCHLORIDE
     Dosage: 8/100 MG, 2?0?2?0
     Route: 048
  7. BISACODYL. [Concomitant]
     Active Substance: BISACODYL
     Dosage: 10 MG, AS NEEDED, SUPPOSITORIES
     Route: 054
  8. XIPAMIDE [Suspect]
     Active Substance: XIPAMIDE
     Indication: PRODUCT USED FOR UNKNOWN INDICATION
     Dosage: 10 MG, 1?0?0?0
     Route: 048
  9. LIXIANA [Suspect]
     Active Substance: EDOXABAN TOSYLATE
     Indication: PRODUCT USED FOR UNKNOWN INDICATION
     Dosage: 30 MG, 1?0?0?0
     Route: 048
  10. AMLODIPINE [Concomitant]
     Active Substance: AMLODIPINE BESYLATE
     Dosage: 5 MG, 1?0?1?0
     Route: 048
  11. QUETIAPINE ? 1 A PHARMA [Concomitant]
     Dosage: 25 MG, 1?0?0?0
     Route: 048

REACTIONS (11)
  - Abdominal pain [Unknown]
  - Gastritis haemorrhagic [Unknown]
  - Weight decreased [Unknown]
  - Dysphagia [Unknown]
  - Flatulence [Unknown]
  - Eructation [Unknown]
  - Product prescribing error [Unknown]
  - Hyponatraemia [Unknown]
  - Dehydration [Unknown]
  - Faeces hard [Unknown]
  - Decreased appetite [Unknown]
